FAERS Safety Report 13920920 (Version 1)
Quarter: 2017Q3

REPORT INFORMATION
  Report Type: Spontaneous
  Country: US (occurrence: None)
  Receive Date: 20170830
  Receipt Date: 20170830
  Transmission Date: 20171127
  Serious: No
  Sender: FDA-Public Use
  Company Number: None

PATIENT
  Age: 57 Year
  Sex: Male
  Weight: 94.35 kg

DRUGS (1)
  1. EZETIMIBE/SIMVASTATIN [Suspect]
     Active Substance: EZETIMIBE\SIMVASTATIN
     Indication: HYPERLIPIDAEMIA
     Dosage: DOSE - 10/20MG
     Route: 048
     Dates: start: 20170707

REACTIONS (4)
  - Muscle spasms [None]
  - Palpitations [None]
  - Hypertension [None]
  - Product substitution issue [None]
